FAERS Safety Report 14817325 (Version 1)
Quarter: 2018Q2

REPORT INFORMATION
  Report Type: Spontaneous
  Country: CH (occurrence: CH)
  Receive Date: 20180426
  Receipt Date: 20180426
  Transmission Date: 20180711
  Serious: Yes (Other)
  Sender: FDA-Public Use
  Company Number: CH-FRESENIUS KABI-FK201804926

PATIENT
  Age: 6 Year
  Sex: Female
  Weight: 24 kg

DRUGS (12)
  1. MORPHINE [Suspect]
     Active Substance: MORPHINE
     Indication: ANAESTHESIA PROCEDURE
     Route: 041
     Dates: start: 20180404, end: 20180404
  2. MORPHINE [Suspect]
     Active Substance: MORPHINE
     Route: 042
  3. DEXDOR [Suspect]
     Active Substance: DEXMEDETOMIDINE HYDROCHLORIDE
     Indication: ANAESTHESIA PROCEDURE
     Route: 042
     Dates: start: 20180404, end: 20180404
  4. RAPIFEN (ALFENTANIL HYDROCHLORIDE) [Suspect]
     Active Substance: ALFENTANIL HYDROCHLORIDE
     Indication: ANAESTHESIA PROCEDURE
     Route: 042
     Dates: start: 20180404, end: 20180404
  5. AMOXICILLIN AND CLAVULA. POTASSIUM [Suspect]
     Active Substance: AMOXICILLIN\CLAVULANATE POTASSIUM
     Indication: INFECTION PROPHYLAXIS
     Route: 042
     Dates: start: 20180404
  6. MORPHINE [Suspect]
     Active Substance: MORPHINE
     Route: 042
  7. ATROPINE. [Suspect]
     Active Substance: ATROPINE
     Indication: ANAESTHESIA PROCEDURE
     Route: 042
     Dates: start: 20180404, end: 20180404
  8. EPHEDRINE. [Suspect]
     Active Substance: EPHEDRINE
     Indication: ANAESTHESIA PROCEDURE
     Route: 042
     Dates: start: 20180404, end: 20180404
  9. NEOSTIGMINE [Suspect]
     Active Substance: NEOSTIGMINE
     Indication: ANAESTHESIA PROCEDURE
     Route: 042
     Dates: start: 20180404, end: 20180404
  10. REMIFENTANIL (MANUFACTURER UNKNOWN) [Suspect]
     Active Substance: REMIFENTANIL
     Indication: ANAESTHESIA PROCEDURE
     Route: 042
     Dates: start: 20180404, end: 20180404
  11. DISOPRIVAN [Suspect]
     Active Substance: PROPOFOL
     Indication: ANAESTHESIA PROCEDURE
     Route: 042
     Dates: start: 20180404, end: 20180404
  12. TRACRIUM [Suspect]
     Active Substance: ATRACURIUM BESYLATE
     Indication: ANAESTHESIA PROCEDURE
     Route: 042
     Dates: start: 20180404, end: 20180404

REACTIONS (2)
  - Angioedema [Recovered/Resolved]
  - Rash papular [Recovered/Resolved]

NARRATIVE: CASE EVENT DATE: 20180404
